FAERS Safety Report 8909590 (Version 2)
Quarter: 2012Q4

REPORT INFORMATION
  Report Type: 
  Country: US (occurrence: US)
  Receive Date: 20121115
  Receipt Date: 20121219
  Transmission Date: 20130627
  Serious: Yes (Death)
  Sender: FDA-Public Use
  Company Number: US-CELGENEUS-163-21880-12111513

PATIENT
  Age: 68 Year
  Sex: Female

DRUGS (6)
  1. REVLIMID [Suspect]
     Indication: MULTIPLE MYELOMA
     Dosage: 5 Milligram
     Route: 048
     Dates: start: 20120907, end: 20121031
  2. MORPHINE [Concomitant]
     Indication: PAIN
     Dosage: 15 Milligram
     Route: 048
  3. LASIX [Concomitant]
     Indication: EDEMA
     Dosage: 40 Milligram
     Route: 048
  4. THYROXIN [Concomitant]
     Indication: HYPOTHYROIDISM
     Dosage: 50 Milligram
     Route: 048
  5. GABAPENTIN [Concomitant]
     Indication: NEUROPATHY
     Dosage: 300 Milligram
     Route: 048
  6. SIMVASTATIN [Concomitant]
     Indication: HYPERLIPIDEMIA
     Dosage: 40 Milligram
     Route: 048

REACTIONS (1)
  - Death [Fatal]
